FAERS Safety Report 9770675 (Version 1)
Quarter: 2013Q4

REPORT INFORMATION
  Report Type: Spontaneous
  Country: FR (occurrence: FR)
  Receive Date: 20131218
  Receipt Date: 20131218
  Transmission Date: 20140711
  Serious: Yes (Hospitalization)
  Sender: FDA-Public Use
  Company Number: FR-GLAXOSMITHKLINE-B0952693A

PATIENT
  Age: 73 Year
  Sex: Female

DRUGS (10)
  1. VALACICLOVIR [Suspect]
     Indication: HERPES ZOSTER
     Dosage: 1000MG THREE TIMES PER DAY
     Route: 048
     Dates: start: 20131127, end: 20131202
  2. METHOTREXATE [Concomitant]
     Dosage: 15MG WEEKLY
     Route: 065
     Dates: end: 20131202
  3. CORTANCYL [Concomitant]
     Dosage: 5MG PER DAY
  4. RENITEC [Concomitant]
     Dosage: 5MG PER DAY
     Route: 065
  5. FOSAMAX [Concomitant]
     Dosage: 70MG WEEKLY
     Route: 065
  6. FLUDEX [Concomitant]
     Dosage: 1TAB PER DAY
     Route: 065
     Dates: end: 20131202
  7. SPECIAFOLDINE [Concomitant]
     Dosage: 10MG WEEKLY
     Route: 065
     Dates: end: 20131202
  8. EUCALYPTOL [Concomitant]
     Dosage: 5MG PER DAY
     Route: 065
  9. DIFFU-K [Concomitant]
     Dosage: 1CAP PER DAY
     Route: 065
  10. CACIT D3 [Concomitant]
     Route: 065

REACTIONS (2)
  - Renal failure acute [Recovering/Resolving]
  - Dehydration [Recovering/Resolving]
